FAERS Safety Report 11493131 (Version 1)
Quarter: 2015Q3

REPORT INFORMATION
  Report Type: Spontaneous
  Country: US (occurrence: US)
  Receive Date: 20150911
  Receipt Date: 20150911
  Transmission Date: 20151125
  Serious: No
  Sender: FDA-Public Use
  Company Number: US-TORRENT-00000963

PATIENT
  Sex: Female

DRUGS (4)
  1. FISH OIL [Concomitant]
     Active Substance: FISH OIL
  2. RANITIDINE [Concomitant]
     Active Substance: RANITIDINE\RANITIDINE HYDROCHLORIDE
  3. LOSARTAN POTASSIUM (50 MG) + HCTZ (12.5 MG) [Suspect]
     Active Substance: HYDROCHLOROTHIAZIDE\LOSARTAN POTASSIUM
     Indication: PRODUCT USED FOR UNKNOWN INDICATION
     Dosage: LOSARTAN POTASSIUM 50MG AND HCTZ 12.5MG
  4. ASPIRIN. [Concomitant]
     Active Substance: ASPIRIN
     Dosage: DAILY

REACTIONS (2)
  - Dry throat [Recovered/Resolved]
  - Dysphonia [Unknown]
